FAERS Safety Report 8588062-1 (Version None)
Quarter: 2012Q3

REPORT INFORMATION
  Report Type: 
  Country: None (occurrence: None)
  Receive Date: 20120813
  Receipt Date: 20120809
  Transmission Date: 20120928
  Serious: Yes (Other)
  Sender: FDA-Public Use
  Company Number: US-PFIZER INC-2012195505

PATIENT
  Age: 75 Year
  Sex: Male
  Weight: 77.1 kg

DRUGS (1)
  1. XANAX [Suspect]
     Indication: ANXIETY
     Dosage: 0.5 MG, 3X/DAY

REACTIONS (3)
  - SOMNOLENCE [None]
  - DRUG DEPENDENCE [None]
  - FATIGUE [None]
